FAERS Safety Report 6866484-4 (Version None)
Quarter: 2010Q3

REPORT INFORMATION
  Report Type: 
  Country: None (occurrence: None)
  Receive Date: 20100722
  Receipt Date: 20100710
  Transmission Date: 20110219
  Serious: Yes (Other)
  Sender: FDA-Public Use
  Company Number: PHHY2010DE45386

PATIENT
  Age: 80 Year
  Sex: Female

DRUGS (5)
  1. DIOVAN HCT [Suspect]
     Dosage: UNK
  2. AMLODIPINE [Concomitant]
     Dosage: UNK
  3. CARVEDILOL [Concomitant]
     Dosage: UNK
  4. ASPIRIN [Concomitant]
     Dosage: UNK
  5. SIMVASTATIN [Concomitant]
     Dosage: UNK

REACTIONS (6)
  - BONE MARROW FAILURE [None]
  - CONSTIPATION [None]
  - GASTRIC HAEMORRHAGE [None]
  - GASTROINTESTINAL TRACT MUCOSAL DISCOLOURATION [None]
  - HIP SURGERY [None]
  - HYPONATRAEMIA [None]
